FAERS Safety Report 11596308 (Version 1)
Quarter: 2015Q4

REPORT INFORMATION
  Report Type: Spontaneous
  Country: US (occurrence: US)
  Receive Date: 20151006
  Receipt Date: 20151006
  Transmission Date: 20160304
  Serious: Yes (Other)
  Sender: FDA-Public Use
  Company Number: US-ACTAVIS-2015-19422

PATIENT
  Age: 35 Year
  Sex: Female

DRUGS (4)
  1. PRENATAL VITAMINS                  /02014401/ [Concomitant]
     Active Substance: VITAMINS
     Indication: PRODUCT USED FOR UNKNOWN INDICATION
  2. MICONAZOLE NITRATE-MICONAZOLE (AMALLC) [Suspect]
     Active Substance: MICONAZOLE NITRATE
     Indication: VULVOVAGINAL CANDIDIASIS
  3. ALBUTEROL                          /00139501/ [Concomitant]
     Active Substance: ALBUTEROL
     Indication: PRODUCT USED FOR UNKNOWN INDICATION
     Dosage: AS NEEDED
     Route: 055
  4. MICONAZOLE NITRATE-MICONAZOLE (AMALLC) [Suspect]
     Active Substance: MICONAZOLE NITRATE
     Indication: VULVOVAGINAL MYCOTIC INFECTION
     Dosage: USED VAGINAL CREAM X 2 DAYS - DID NOT USE SUPPOSITORIES
     Route: 061
     Dates: start: 20150905, end: 20150906

REACTIONS (12)
  - Premature labour [Recovering/Resolving]
  - Vulvovaginal pruritus [Unknown]
  - Vulvovaginal discomfort [Recovered/Resolved]
  - Vaginal oedema [Recovered/Resolved]
  - Vulvovaginal pain [Recovering/Resolving]
  - Expired product administered [Unknown]
  - Vulvovaginal swelling [Recovered/Resolved]
  - Maternal exposure during pregnancy [Unknown]
  - Abdominal pain [Recovering/Resolving]
  - Vulvovaginal burning sensation [Recovered/Resolved]
  - Vulvovaginal erythema [Recovering/Resolving]
  - Vaginal inflammation [Recovering/Resolving]

NARRATIVE: CASE EVENT DATE: 201509
